FAERS Safety Report 5464573-2 (Version None)
Quarter: 2007Q3

REPORT INFORMATION
  Report Type: 
  Country: None (occurrence: None)
  Receive Date: 20070921
  Receipt Date: 20070914
  Transmission Date: 20080115
  Serious: Yes (Hospitalization, Other)
  Sender: FDA-Public Use
  Company Number: US-GENENTECH-236354

PATIENT
  Age: 91 Year
  Sex: Female

DRUGS (2)
  1. LUCENTIS [Suspect]
     Indication: MACULAR DEGENERATION
     Dosage: UNK, UNK
     Dates: start: 20060701
  2. COUMADIN [Suspect]
     Indication: ATRIAL FIBRILLATION

REACTIONS (1)
  - HAEMORRHAGIC STROKE [None]
